FAERS Safety Report 4393035-9 (Version None)
Quarter: 2004Q3

REPORT INFORMATION
  Report Type: 
  Country: None (occurrence: None)
  Receive Date: 20040708
  Receipt Date: 20030225
  Transmission Date: 20050211
  Serious: Yes (Hospitalization)
  Sender: FDA-Public Use
  Company Number: US-ROCHE-332719

PATIENT
  Age: 47 Year
  Sex: Female
  Weight: 68 kg

DRUGS (4)
  1. PEGASYS [Suspect]
     Indication: HEPATITIS C
     Route: 058
     Dates: start: 20021115, end: 20030115
  2. PEGASYS [Suspect]
     Dosage: CHANGE IN STRENGTH : 135 MCG / UNKNOWN.
     Route: 058
     Dates: start: 20030115, end: 20030214
  3. COPEGUS [Suspect]
     Indication: HEPATITIS C
     Dosage: 15 NOV 2002 TO 15 JAN 2003 (EST),  AM: 2 CAPSULES AND PM: 3 CAPSULES. 15 JAN 2003 (EST)TO 14 FEB 20+
     Route: 048
     Dates: start: 20021115, end: 20030214
  4. METHADONE HCL [Concomitant]
     Indication: PAIN
     Route: 048

REACTIONS (17)
  - ALOPECIA [None]
  - ANAEMIA [None]
  - BLOOD BLISTER [None]
  - BONE PAIN [None]
  - FUNGAL INFECTION [None]
  - GALLBLADDER DISORDER [None]
  - MYELODYSPLASTIC SYNDROME [None]
  - NEUTROPENIA [None]
  - ORAL CANDIDIASIS [None]
  - PAIN OF SKIN [None]
  - RASH [None]
  - RASH GENERALISED [None]
  - RASH MACULAR [None]
  - RASH PRURITIC [None]
  - SEPSIS [None]
  - SKIN ULCER [None]
  - THROMBOCYTOPENIA [None]
